FAERS Safety Report 7755444-7 (Version None)
Quarter: 2011Q3

REPORT INFORMATION
  Report Type: 
  Country: None (occurrence: None)
  Receive Date: 20110830
  Receipt Date: 20110309
  Transmission Date: 20111222
  Serious: Yes (Disabling)
  Sender: FDA-Public Use
  Company Number: WAES 1103USA01407

PATIENT
  Age: 48 Year
  Sex: Female

DRUGS (3)
  1. ALPRAZOLAM [Concomitant]
  2. METHADONE HYDROCHLORIDE [Concomitant]
  3. MAXALT-MLT [Suspect]
     Indication: HEADACHE
     Dosage: 10 MG/DAILY/PO
     Route: 048

REACTIONS (1)
  - PAIN [None]
